FAERS Safety Report 9685313 (Version 9)
Quarter: 2016Q3

REPORT INFORMATION
  Report Type: Spontaneous
  Country: US (occurrence: US)
  Receive Date: 20131113
  Receipt Date: 20160810
  Transmission Date: 20161109
  Serious: Yes (Hospitalization, Disabling, Other)
  Sender: FDA-Public Use
  Company Number: US-009507513-1311USA004017

PATIENT
  Sex: Female
  Weight: 72.56 kg

DRUGS (10)
  1. FOSAMAX [Suspect]
     Active Substance: ALENDRONATE SODIUM
     Indication: OSTEOPENIA
     Dosage: 70 MG, QW
     Route: 048
     Dates: start: 20010821, end: 20120813
  2. FOSAMAX [Suspect]
     Active Substance: ALENDRONATE SODIUM
     Indication: OSTEOPOROSIS
  3. FOSAMAX PLUS D [Suspect]
     Active Substance: ALENDRONATE SODIUM\CHOLECALCIFEROL
     Indication: OSTEOPENIA
     Route: 048
  4. VITAMINS (UNSPECIFIED) [Concomitant]
     Active Substance: VITAMINS
     Dosage: UNK
     Route: 065
     Dates: start: 2001, end: 2012
  5. CALCIUM (UNSPECIFIED) (+) VITAMIN D (UNSPECIFIED) [Concomitant]
     Active Substance: CALCIUM CARBONATE\VITAMIN D
     Dosage: 1200 MG, UNK
     Route: 065
     Dates: start: 2001, end: 2012
  6. ZOLOFT [Concomitant]
     Active Substance: SERTRALINE HYDROCHLORIDE
     Indication: DEPRESSION
     Dosage: 50MG 1/2 Q, QD
     Route: 048
  7. CHOLECALCIFEROL [Concomitant]
     Active Substance: CHOLECALCIFEROL
     Dosage: 2000 IU, QD
     Route: 065
     Dates: start: 2001, end: 2007
  8. ALENDRONATE SODIUM. [Suspect]
     Active Substance: ALENDRONATE SODIUM
     Dosage: 70 MG, QW
     Route: 048
  9. FOSAMAX PLUS D [Suspect]
     Active Substance: ALENDRONATE SODIUM\CHOLECALCIFEROL
     Indication: OSTEOPOROSIS
  10. FLEXERIL [Concomitant]
     Active Substance: CYCLOBENZAPRINE HYDROCHLORIDE
     Indication: BACK PAIN
     Dosage: 10 MG, PRN
     Route: 048

REACTIONS (21)
  - Femur fracture [Recovered/Resolved]
  - Cutaneous lupus erythematosus [Unknown]
  - Migraine [Unknown]
  - Papule [Unknown]
  - Reflux laryngitis [Unknown]
  - Stress [Unknown]
  - Chest pain [Unknown]
  - Anxiety [Unknown]
  - Foot fracture [Unknown]
  - Anaemia postoperative [Unknown]
  - Ear congestion [Unknown]
  - Intramedullary rod insertion [Unknown]
  - Palpitations [Unknown]
  - Acute sinusitis [Unknown]
  - Vitamin D deficiency [Unknown]
  - Large intestine polyp [Unknown]
  - Upper respiratory tract infection [Unknown]
  - Myalgia [Unknown]
  - Pain in extremity [Unknown]
  - Nasal turbinate hypertrophy [Unknown]
  - Pyrexia [Unknown]

NARRATIVE: CASE EVENT DATE: 2003
